FAERS Safety Report 5113713-3 (Version None)
Quarter: 2006Q3

REPORT INFORMATION
  Report Type: 
  Country: None (occurrence: None)
  Receive Date: 20060925
  Receipt Date: 20060914
  Transmission Date: 20061208
  Serious: Yes (Other)
  Sender: FDA-Public Use
  Company Number: 2006PK01884

PATIENT
  Age: 44 Year
  Sex: Female
  Weight: 60 kg

DRUGS (2)
  1. NOLVADEX [Suspect]
     Indication: BREAST CANCER
     Route: 048
     Dates: start: 20000101, end: 20050901
  2. ENANTON [Concomitant]
     Indication: BREAST CANCER

REACTIONS (3)
  - CATARACT [None]
  - MACULAR OEDEMA [None]
  - UVEITIS [None]
